FAERS Safety Report 21125484 (Version 1)
Quarter: 2022Q3

REPORT INFORMATION
  Report Type: Spontaneous
  Country: GB (occurrence: GB)
  Receive Date: 20220725
  Receipt Date: 20220725
  Transmission Date: 20221026
  Serious: Yes (Hospitalization, Other)
  Sender: FDA-Public Use
  Company Number: None

PATIENT
  Age: 43 Year
  Sex: Male

DRUGS (2)
  1. BUPRENORPHINE [Suspect]
     Active Substance: BUPRENORPHINE
     Indication: Product used for unknown indication
     Route: 065
  2. ISOTONITAZENE [Suspect]
     Active Substance: ISOTONITAZENE
     Indication: Product used for unknown indication
     Route: 065

REACTIONS (2)
  - Syncope [Recovered/Resolved]
  - Toxicity to various agents [Recovered/Resolved]
